FAERS Safety Report 8575861-5 (Version None)
Quarter: 2012Q3

REPORT INFORMATION
  Report Type: 
  Country: None (occurrence: None)
  Receive Date: 20120807
  Receipt Date: 20120727
  Transmission Date: 20120928
  Serious: Yes (Other)
  Sender: FDA-Public Use
  Company Number: BR-AMGEN-BRASP2012020809

PATIENT
  Age: 56 Year
  Sex: Female
  Weight: 75 kg

DRUGS (4)
  1. ENBREL [Suspect]
     Indication: RHEUMATOID ARTHRITIS
     Dosage: 50 MG, 1X/WEEK
     Route: 058
     Dates: start: 20091201, end: 20110101
  2. METOPROLOL TARTRATE [Concomitant]
     Dosage: UNK
  3. ENBREL [Suspect]
     Dosage: 50 MG, 1X/WEEK
     Route: 058
     Dates: end: 20110701
  4. MODURETIC 5-50 [Concomitant]
     Dosage: UNK

REACTIONS (2)
  - OSTEOARTHRITIS [None]
  - DRUG INEFFECTIVE [None]
